FAERS Safety Report 8549568-4 (Version None)
Quarter: 2012Q3

REPORT INFORMATION
  Report Type: 
  Country: None (occurrence: None)
  Receive Date: 20120718
  Receipt Date: 20120703
  Transmission Date: 20120928
  Serious: Yes (Other)
  Sender: FDA-Public Use
  Company Number: FK201201866

PATIENT
  Age: 62 Year
  Sex: Male

DRUGS (3)
  1. PACLITAXEL [Suspect]
     Indication: NON-SMALL CELL LUNG CANCER
     Dosage: 200 MG/M2, INTRAVENOUS (NOT SPECIFIED)
     Route: 042
  2. DEXAMETHASONE SODIUM PHOSPHATE [Concomitant]
  3. CARBOPLATIN [Suspect]
     Indication: NON-SMALL CELL LUNG CANCER
     Dosage: AUC 6 MIN MG/ML INTRAVENOUS (NOT OTHERWISE SPECIFIED)
     Route: 042

REACTIONS (5)
  - ORAL DISORDER [None]
  - BLOOD PRESSURE INCREASED [None]
  - ANAEMIA [None]
  - HEAD DISCOMFORT [None]
  - POSTERIOR REVERSIBLE ENCEPHALOPATHY SYNDROME [None]
